FAERS Safety Report 5647129-8 (Version None)
Quarter: 2008Q1

REPORT INFORMATION
  Report Type: 
  Country: None (occurrence: None)
  Receive Date: 20080228
  Receipt Date: 20080228
  Transmission Date: 20080703
  Serious: Yes (Other)
  Sender: FDA-Public Use
  Company Number: None

PATIENT
  Age: 61 Year
  Sex: Female
  Weight: 72.5755 kg

DRUGS (1)
  1. CHANTIX [Suspect]
     Indication: SMOKING CESSATION THERAPY
     Dosage: BID PO
     Route: 048
     Dates: start: 20071208, end: 20080208

REACTIONS (6)
  - ABNORMAL BEHAVIOUR [None]
  - ABNORMAL DREAMS [None]
  - ANXIETY [None]
  - IMPAIRED WORK ABILITY [None]
  - MENTAL DISORDER [None]
  - TINNITUS [None]
